FAERS Safety Report 14300520 (Version 5)
Quarter: 2018Q2

REPORT INFORMATION
  Report Type: Spontaneous
  Country: FR (occurrence: FR)
  Receive Date: 20171219
  Receipt Date: 20180410
  Transmission Date: 20180711
  Serious: Yes (Death, Life-Threatening, Hospitalization)
  Sender: FDA-Public Use
  Company Number: FR-ROCHE-2041581

PATIENT
  Age: 67 Year
  Sex: Male

DRUGS (11)
  1. SIMULECT [Suspect]
     Active Substance: BASILIXIMAB
     Indication: RENAL TRANSPLANT
     Route: 065
     Dates: start: 201310
  2. CORTANCYL [Suspect]
     Active Substance: PREDNISONE
     Indication: RENAL TRANSPLANT
     Route: 065
     Dates: start: 20131001
  3. NULOJIX [Suspect]
     Active Substance: BELATACEPT
     Indication: PROPHYLAXIS AGAINST TRANSPLANT REJECTION
     Route: 042
     Dates: start: 20131001, end: 20150617
  4. NULOJIX [Suspect]
     Active Substance: BELATACEPT
     Indication: PRODUCT USED FOR UNKNOWN INDICATION
     Dosage: 10 MG/KG, ON DAY 1 (DL), D5, WEEK 2 (W2), W4, W8, W12
     Route: 042
  5. TACROLIMUS. [Suspect]
     Active Substance: TACROLIMUS
     Indication: TRANSPLANT
     Route: 065
  6. CELLCEPT [Suspect]
     Active Substance: MYCOPHENOLATE MOFETIL\MYCOPHENOLATE MOFETIL HYDROCHLORIDE
     Indication: IMMUNOSUPPRESSANT DRUG THERAPY
     Dosage: 630000 MG
     Route: 065
  7. BASILIXIMAB [Suspect]
     Active Substance: BASILIXIMAB
     Indication: RENAL TRANSPLANT
     Route: 065
  8. VALGANCICLOVIR. [Concomitant]
     Active Substance: VALGANCICLOVIR
  9. CELLCEPT [Suspect]
     Active Substance: MYCOPHENOLATE MOFETIL\MYCOPHENOLATE MOFETIL HYDROCHLORIDE
     Indication: RENAL TRANSPLANT
     Route: 065
     Dates: start: 20131001, end: 20150622
  10. SIMULECT [Suspect]
     Active Substance: BASILIXIMAB
     Indication: IMMUNOSUPPRESSANT DRUG THERAPY
     Route: 065
  11. CELLCEPT [Suspect]
     Active Substance: MYCOPHENOLATE MOFETIL\MYCOPHENOLATE MOFETIL HYDROCHLORIDE
     Indication: PRODUCT USED FOR UNKNOWN INDICATION

REACTIONS (21)
  - Respiratory failure [Fatal]
  - Aphasia [Fatal]
  - Epstein-Barr virus infection [Fatal]
  - Hemiplegia [Unknown]
  - Polyomavirus-associated nephropathy [Unknown]
  - Hemiparesis [Fatal]
  - Muscular weakness [Fatal]
  - Affective disorder [Fatal]
  - Coma [Unknown]
  - Disorientation [Fatal]
  - Progressive multifocal leukoencephalopathy [Fatal]
  - Visual impairment [Fatal]
  - Learning disorder [Fatal]
  - Blindness cortical [Unknown]
  - BK virus infection [Unknown]
  - Cytomegalovirus infection [Unknown]
  - JC virus infection [Fatal]
  - Hypogammaglobulinaemia [Fatal]
  - Lymphopenia [Fatal]
  - Confusional state [Fatal]
  - Kidney transplant rejection [Unknown]

NARRATIVE: CASE EVENT DATE: 201501
